FAERS Safety Report 21684346 (Version 1)
Quarter: 2022Q4

REPORT INFORMATION
  Report Type: Spontaneous
  Country: US (occurrence: None)
  Receive Date: 20221202
  Receipt Date: 20221202
  Transmission Date: 20230113
  Serious: Yes (Hospitalization)
  Sender: FDA-Public Use
  Company Number: None

PATIENT
  Sex: Female

DRUGS (1)
  1. ZIEXTENZO [Suspect]
     Active Substance: PEGFILGRASTIM-BMEZ
     Indication: Rectal cancer
     Dosage: OTHER QUANTITY : 26MG/0.6ML;?
     Route: 058
     Dates: start: 20220408

REACTIONS (2)
  - Adverse drug reaction [None]
  - Therapy interrupted [None]
